FAERS Safety Report 18367359 (Version 1)
Quarter: 2020Q4

REPORT INFORMATION
  Report Type: Spontaneous
  Country: IT (occurrence: IT)
  Receive Date: 20201009
  Receipt Date: 20201009
  Transmission Date: 20210114
  Serious: Yes (Hospitalization, Other)
  Sender: FDA-Public Use
  Company Number: PHHY2018IT003365

PATIENT
  Age: 58 Year
  Sex: Female

DRUGS (8)
  1. DULOXETINA [Suspect]
     Active Substance: DULOXETINE
     Indication: CANCER PAIN
     Dosage: 30 MG, QD
     Route: 065
  2. MORFINA [Suspect]
     Active Substance: MORPHINE HYDROCHLORIDE
     Indication: BREAKTHROUGH PAIN
  3. DESAMETASONE [Suspect]
     Active Substance: DEXAMETHASONE
     Indication: CANCER PAIN
     Dosage: 4 MG, QD
     Route: 042
  4. FENTANYL. [Suspect]
     Active Substance: FENTANYL
     Indication: CANCER PAIN
     Dosage: 288 MICROGRAMS QD
     Route: 062
  5. FENTANYL. [Suspect]
     Active Substance: FENTANYL
     Dosage: 600 MICROGRAMS  QD
     Route: 062
  6. MORFINA [Suspect]
     Active Substance: MORPHINE HYDROCHLORIDE
     Indication: CANCER PAIN
     Dosage: 5 MG (AS NECESSARY)
     Route: 042
  7. FENTANYL. [Suspect]
     Active Substance: FENTANYL
     Indication: BREAKTHROUGH PAIN
     Dosage: 100 UG
     Route: 048
  8. ACETAMINOPHEN (PARACETAMOL) [Suspect]
     Active Substance: ACETAMINOPHEN
     Indication: CANCER PAIN
     Dosage: 500 MG (AS NECESSARY)
     Route: 042

REACTIONS (7)
  - Ulcer [Unknown]
  - Somnolence [Unknown]
  - Pain [Unknown]
  - Vomiting [Unknown]
  - Nausea [Unknown]
  - Haemorrhage [Unknown]
  - Swelling [Unknown]
